FAERS Safety Report 16553094 (Version 2)
Quarter: 2020Q4

REPORT INFORMATION
  Report Type: Spontaneous
  Country: US (occurrence: US)
  Receive Date: 20190710
  Receipt Date: 20201130
  Transmission Date: 20210113
  Serious: Yes (Hospitalization, Other)
  Sender: FDA-Public Use
  Company Number: US-HORIZON-PRE-0297-2019

PATIENT
  Age: 59 Year
  Sex: Female
  Weight: 83.9 kg

DRUGS (4)
  1. OPSUMIT [Concomitant]
     Active Substance: MACITENTAN
  2. ELIQUIS [Concomitant]
     Active Substance: APIXABAN
  3. REMODULIN [Suspect]
     Active Substance: TREPROSTINIL
     Indication: PULMONARY ARTERIAL HYPERTENSION
     Dosage: 17 NG/KG/MIN
     Route: 042
     Dates: start: 20190417
  4. PREDNISONE. [Suspect]
     Active Substance: PREDNISONE
     Indication: JOINT SWELLING
     Dosage: 50 MG

REACTIONS (8)
  - Decubitus ulcer [Unknown]
  - Ankle fracture [Not Recovered/Not Resolved]
  - Osteoporosis [Unknown]
  - Hallucination [Unknown]
  - Arthralgia [Unknown]
  - Joint swelling [Unknown]
  - Impaired healing [Unknown]
  - Gait disturbance [Unknown]

NARRATIVE: CASE EVENT DATE: 2019
